FAERS Safety Report 15691479 (Version 1)
Quarter: 2018Q4

REPORT INFORMATION
  Report Type: Report from Study
  Country: CO (occurrence: CO)
  Receive Date: 20181205
  Receipt Date: 20181205
  Transmission Date: 20190205
  Serious: Yes (Hospitalization)
  Sender: FDA-Public Use
  Company Number: CO-BAYER-2018-219476

PATIENT
  Age: 61 Year
  Sex: Male

DRUGS (4)
  1. WARFARIN [Concomitant]
     Active Substance: WARFARIN
     Dosage: UNK
  2. ENOXAPARIN [Concomitant]
     Active Substance: ENOXAPARIN
  3. ADEMPAS [Suspect]
     Active Substance: RIOCIGUAT
     Indication: PULMONARY HYPERTENSION
  4. ADEMPAS [Suspect]
     Active Substance: RIOCIGUAT
     Indication: PULMONARY HYPERTENSION
     Dosage: 1 DF, Q8HR
     Dates: start: 20160702

REACTIONS (6)
  - Unevaluable event [None]
  - Prostatitis [Unknown]
  - Prostate ablation [None]
  - Blood urine present [Not Recovered/Not Resolved]
  - Dysuria [Unknown]
  - Surgery [None]

NARRATIVE: CASE EVENT DATE: 20181121
